FAERS Safety Report 5069869-4 (Version None)
Quarter: 2006Q3

REPORT INFORMATION
  Report Type: 
  Country: None (occurrence: None)
  Receive Date: 20060802
  Receipt Date: 20060802
  Transmission Date: 20061208
  Serious: Yes (Life-Threatening)
  Sender: FDA-Public Use
  Company Number: None

PATIENT
  Age: 70 Year
  Sex: Male
  Weight: 134.2647 kg

DRUGS (2)
  1. TESTOSTERONE [Suspect]
     Indication: HYPOGONADISM
     Dosage: 200 MG /ML Q2 WEEKS IM
     Route: 030
     Dates: start: 20050623, end: 20060623
  2. TESTOSTERONE [Suspect]

REACTIONS (4)
  - CARDIOMYOPATHY [None]
  - CELLULITIS [None]
  - DYSPNOEA [None]
  - OEDEMA PERIPHERAL [None]
